FAERS Safety Report 6732866-4 (Version None)
Quarter: 2010Q2

REPORT INFORMATION
  Report Type: 
  Country: None (occurrence: None)
  Receive Date: 20100517
  Receipt Date: 20100506
  Transmission Date: 20101027
  Serious: Yes (Hospitalization)
  Sender: FDA-Public Use
  Company Number: DSA_42774_2010

PATIENT
  Age: 89 Year
  Sex: Female

DRUGS (10)
  1. DILTIAZEM HCL [Suspect]
     Indication: DRUG USE FOR UNKNOWN INDICATION
     Dosage: 240 M G QD ORAL
     Route: 048
     Dates: end: 20091001
  2. IBUSTRIN /00730702/ (IBUSTRIN - INDOBUFIN SODIUM) 200 MG (NOT SPECIFIE [Suspect]
     Indication: DRUG USE FOR UNKNOWN INDICATION
     Dosage: 200 MG QD ORAL
     Route: 048
     Dates: end: 20091001
  3. MODURETIC (MODURETIC - AMILORIDE HYDROCHLOROTHIAZIDE) (NOT SPECIFIED) [Suspect]
     Indication: DRUG USE FOR UNKNOWN INDICATION
     Dosage: 50/50 MG QD ORAL
     Route: 048
     Dates: end: 20091001
  4. LANOXIN [Suspect]
     Indication: DRUG USE FOR UNKNOWN INDICATION
     Dosage: 0.0625 MG QD ORAL
     Route: 048
     Dates: end: 20091001
  5. ISOSORBIDE MONONITRATE [Concomitant]
  6. FLUTICASONE PROPIONATE [Concomitant]
  7. ALLURIT [Concomitant]
  8. VENTOLIN [Concomitant]
  9. AMINOMAL [Concomitant]
  10. SPIRIVA [Concomitant]

REACTIONS (8)
  - APHASIA [None]
  - ATRIOVENTRICULAR BLOCK [None]
  - BUNDLE BRANCH BLOCK LEFT [None]
  - CEREBRAL ISCHAEMIA [None]
  - CONFUSIONAL STATE [None]
  - DISORIENTATION [None]
  - HYPERKALAEMIA [None]
  - RENAL FAILURE CHRONIC [None]
